FAERS Safety Report 9159147 (Version 1)
Quarter: 2013Q1

REPORT INFORMATION
  Report Type: Spontaneous
  Country: FR (occurrence: None)
  Receive Date: 20130213
  Receipt Date: 20130213
  Transmission Date: 20140127
  Serious: Yes (Other)
  Sender: FDA-Public Use
  Company Number: 2013P1001964

PATIENT
  Sex: Female
  Weight: 75 kg

DRUGS (4)
  1. LIDOCAINE [Suspect]
     Route: 008
  2. LEVOBUPIVACAINE [Suspect]
     Route: 008
  3. SUFENTANIL [Concomitant]
  4. CATAPRESSAN [Concomitant]

REACTIONS (6)
  - Nausea [None]
  - Hypotension [None]
  - Somnolence [None]
  - Tremor [None]
  - Dyskinesia [None]
  - Coma [None]
